FAERS Safety Report 8822137 (Version 1)
Quarter: 2012Q4

REPORT INFORMATION
  Report Type: 
  Country: JP (occurrence: JP)
  Receive Date: 20121003
  Receipt Date: 20121003
  Transmission Date: 20130627
  Serious: Yes (Disabling)
  Sender: FDA-Public Use
  Company Number: JP-SANOFI-AVENTIS-2012SA071070

PATIENT
  Age: 80 Year
  Sex: Female
  Weight: 43 kg

DRUGS (9)
  1. AMARYL [Suspect]
     Indication: TYPE II DIABETES MELLITUS
     Route: 048
     Dates: start: 2007
  2. GLUCOBAY [Concomitant]
     Indication: TYPE 2 DIABETES MELLITUS
  3. METFORMIN HYDROCHLORIDE [Concomitant]
     Indication: TYPE 2 DIABETES MELLITUS
  4. ADALAT [Concomitant]
     Indication: HYPERTENSION
  5. MEVALOTIN [Concomitant]
     Indication: HYPERLIPIDEMIA
  6. BUP-4 [Concomitant]
  7. MECOBALAMIN [Concomitant]
  8. FLUITRAN [Concomitant]
  9. FAMOTIDINE [Concomitant]

REACTIONS (3)
  - Hypoglycaemic encephalopathy [Not Recovered/Not Resolved]
  - Altered state of consciousness [Not Recovered/Not Resolved]
  - Dehydration [Unknown]
